FAERS Safety Report 5709057-9 (Version None)
Quarter: 2008Q2

REPORT INFORMATION
  Report Type: 
  Country: None (occurrence: None)
  Receive Date: 20080418
  Receipt Date: 20080418
  Transmission Date: 20081010
  Serious: Yes (Life-Threatening, Hospitalization)
  Sender: FDA-Public Use
  Company Number: None

PATIENT
  Sex: Male
  Weight: 79.3795 kg

DRUGS (1)
  1. HEPARIN [Suspect]
     Indication: TRANSIENT ISCHAEMIC ATTACK
     Dosage: IV
     Route: 042
     Dates: start: 20080125, end: 20080205

REACTIONS (4)
  - HEART RATE DECREASED [None]
  - MALAISE [None]
  - PHARMACEUTICAL PRODUCT COMPLAINT [None]
  - STEVENS-JOHNSON SYNDROME [None]
